FAERS Safety Report 23450290 (Version 1)
Quarter: 2024Q1

REPORT INFORMATION
  Report Type: Spontaneous
  Country: US (occurrence: US)
  Receive Date: 20240129
  Receipt Date: 20240129
  Transmission Date: 20240409
  Serious: No
  Sender: FDA-Public Use
  Company Number: US-009507513-2401USA008139

PATIENT
  Sex: Male

DRUGS (1)
  1. SEGLUROMET [Suspect]
     Active Substance: ERTUGLIFLOZIN PIDOLATE\METFORMIN HYDROCHLORIDE
     Indication: Diabetes mellitus
     Dosage: 1000 MG ONCE DAILY
     Route: 048

REACTIONS (1)
  - Inappropriate schedule of product administration [Unknown]
